FAERS Safety Report 24859060 (Version 1)
Quarter: 2025Q1

REPORT INFORMATION
  Report Type: Report from Study
  Country: US (occurrence: US)
  Receive Date: 20250118
  Receipt Date: 20250118
  Transmission Date: 20250409
  Serious: Yes (Hospitalization)
  Sender: ABBVIE
  Company Number: US-ABBVIE-6085871

PATIENT
  Age: 46 Year
  Sex: Female

DRUGS (2)
  1. HUMIRA [Suspect]
     Active Substance: ADALIMUMAB
     Indication: Psoriatic arthropathy
     Route: 058
     Dates: start: 2023
  2. OTEZLA [Suspect]
     Active Substance: APREMILAST
     Indication: Product used for unknown indication
     Route: 065

REACTIONS (5)
  - Diarrhoea [Unknown]
  - Vomiting [Unknown]
  - Abdominal pain upper [Unknown]
  - Decreased appetite [Unknown]
  - Pancreatic enlargement [Unknown]

NARRATIVE: CASE EVENT DATE: 20240101
